FAERS Safety Report 10081352 (Version 2)
Quarter: 2014Q3

REPORT INFORMATION
  Report Type: Spontaneous
  Country: US (occurrence: US)
  Receive Date: 20140416
  Receipt Date: 20140825
  Transmission Date: 20150326
  Serious: Yes (Hospitalization)
  Sender: FDA-Public Use
  Company Number: US-BAYER-2014-055513

PATIENT
  Age: 20 Year
  Sex: Female
  Weight: 48.53 kg

DRUGS (3)
  1. MIRENA [Suspect]
     Active Substance: LEVONORGESTREL
     Indication: CONTRACEPTION
     Dosage: 20 MCG/24HR, CONT
     Route: 015
     Dates: start: 20111212, end: 20120307
  2. ZOLOFT [Concomitant]
     Active Substance: SERTRALINE HYDROCHLORIDE
     Indication: POSTPARTUM DEPRESSION
     Dosage: 25 MG, DAILY
     Route: 048
     Dates: start: 20120307
  3. ZOLOFT [Concomitant]
     Active Substance: SERTRALINE HYDROCHLORIDE
     Indication: POSTPARTUM DEPRESSION
     Dosage: 50 MG, UNK

REACTIONS (11)
  - Anxiety [None]
  - Pain [None]
  - Internal injury [None]
  - Fear [None]
  - Menorrhagia [None]
  - Depression [None]
  - Device issue [None]
  - Injury [None]
  - Emotional distress [None]
  - Medical device discomfort [None]
  - Uterine perforation [None]

NARRATIVE: CASE EVENT DATE: 201203
